FAERS Safety Report 6708073-8 (Version None)
Quarter: 2010Q2

REPORT INFORMATION
  Report Type: 
  Country: None (occurrence: None)
  Receive Date: 20100503
  Receipt Date: 20090310
  Transmission Date: 20101027
  Serious: No
  Sender: FDA-Public Use
  Company Number: US-ASTRAZENECA-2009UW06327

PATIENT
  Sex: Female
  Weight: 67.1 kg

DRUGS (9)
  1. NEXIUM [Suspect]
     Indication: GASTROOESOPHAGEAL REFLUX DISEASE
     Route: 048
  2. PLAVIX [Concomitant]
  3. EVISTA [Concomitant]
  4. AVAPRO [Concomitant]
  5. HYDROCHLOROTHIAZIDE [Concomitant]
  6. XALATAN [Concomitant]
  7. TIMOLOL [Concomitant]
  8. TRAMADOL HCL [Concomitant]
  9. TYLENOL-500 [Concomitant]

REACTIONS (1)
  - BLOOD PRESSURE FLUCTUATION [None]
